FAERS Safety Report 13758816 (Version 1)
Quarter: 2017Q3

REPORT INFORMATION
  Report Type: Spontaneous
  Country: NI (occurrence: US)
  Receive Date: 20170715
  Receipt Date: 20170715
  Transmission Date: 20171127
  Serious: Yes (Disabling)
  Sender: FDA-Public Use
  Company Number: None

PATIENT
  Age: 10 Year
  Sex: Female
  Weight: 47.25 kg

DRUGS (1)
  1. MONTELUKAST [Suspect]
     Active Substance: MONTELUKAST SODIUM
     Indication: PROPHYLAXIS
     Dosage: ?          OTHER STRENGTH:MG;QUANTITY:7 CAPSULE(S);?DAILY ORAL
     Route: 048

REACTIONS (2)
  - Arthralgia [None]
  - Arthritis [None]

NARRATIVE: CASE EVENT DATE: 20170107
